FAERS Safety Report 5796789-X (Version None)
Quarter: 2008Q2

REPORT INFORMATION
  Report Type: 
  Country: None (occurrence: None)
  Receive Date: 20080630
  Receipt Date: 20080630
  Transmission Date: 20081010
  Serious: No
  Sender: FDA-Public Use
  Company Number: None

PATIENT
  Age: 40 Year
  Sex: Male

DRUGS (2)
  1. ASTELIN [Suspect]
     Dosage: 4 SPRAYS
     Route: 045
     Dates: start: 20080612, end: 20080613
  2. FISH OIL SUPPLEMENTS [Concomitant]

REACTIONS (7)
  - ANXIETY [None]
  - DIZZINESS [None]
  - FATIGUE [None]
  - NAUSEA [None]
  - PALPITATIONS [None]
  - PANIC REACTION [None]
  - SLEEP DISORDER [None]
